FAERS Safety Report 6046100-4 (Version None)
Quarter: 2009Q1

REPORT INFORMATION
  Report Type: 
  Country: None (occurrence: None)
  Receive Date: 20090121
  Receipt Date: 20090121
  Transmission Date: 20090719
  Serious: No
  Sender: FDA-Public Use
  Company Number: None

PATIENT
  Sex: Female
  Weight: 70.3075 kg

DRUGS (1)
  1. WELLBUTRIN XL [Suspect]
     Dosage: 150MG TID

REACTIONS (2)
  - PARANOIA [None]
  - SLEEP TERROR [None]
